FAERS Safety Report 4729925-4 (Version None)
Quarter: 2005Q3

REPORT INFORMATION
  Report Type: 
  Country: None (occurrence: None)
  Receive Date: 20050728
  Receipt Date: 20050720
  Transmission Date: 20060218
  Serious: Yes (Life-Threatening, Other)
  Sender: FDA-Public Use
  Company Number: JP-2005-014375

PATIENT
  Age: 40 Year
  Sex: Male
  Weight: 70 kg

DRUGS (1)
  1. MAGNEVIST [Suspect]
     Indication: NUCLEAR MAGNETIC RESONANCE IMAGING
     Dosage: 1 DOSE
     Dates: start: 20050708, end: 20050708

REACTIONS (6)
  - BLOOD PRESSURE DECREASED [None]
  - GLOSSOPTOSIS [None]
  - INFUSION RELATED REACTION [None]
  - MEDICAL DEVICE COMPLICATION [None]
  - NAUSEA [None]
  - PULSE ABSENT [None]
